FAERS Safety Report 17459403 (Version 1)
Quarter: 2020Q1

REPORT INFORMATION
  Report Type: Spontaneous
  Country: US (occurrence: US)
  Receive Date: 20200225
  Receipt Date: 20200225
  Transmission Date: 20200409
  Serious: No
  Sender: FDA-Public Use
  Company Number: US-ROCHE-2461036

PATIENT
  Sex: Male
  Weight: 26 kg

DRUGS (1)
  1. NUTROPIN AQ [Suspect]
     Active Substance: SOMATROPIN
     Indication: SILVER-RUSSELL SYNDROME
     Route: 042

REACTIONS (3)
  - Off label use [Unknown]
  - Product quality issue [Unknown]
  - Administration site pain [Unknown]
